FAERS Safety Report 4713760-7 (Version None)
Quarter: 2005Q3

REPORT INFORMATION
  Report Type: 
  Country: None (occurrence: None)
  Receive Date: 20050712
  Receipt Date: 20050627
  Transmission Date: 20060218
  Serious: Yes (Hospitalization, Disabling)
  Sender: FDA-Public Use
  Company Number: 200504IM000158

PATIENT
  Age: 50 Year
  Sex: Male
  Weight: 93.441 kg

DRUGS (5)
  1. INFERGEN [Suspect]
     Indication: HEPATITIS C
     Dosage: 15 UG, QD, SUBCUTANEOUS
     Route: 058
     Dates: start: 20041014, end: 20041108
  2. RIBAVIRIN [Suspect]
     Indication: HEPATITIS C
     Dosage: 600 MG, BID, ORAL
     Route: 048
     Dates: start: 20041014, end: 20041108
  3. SYNTHROID [Concomitant]
  4. AMBIEN [Concomitant]
  5. PROTONIX [Concomitant]

REACTIONS (7)
  - ABASIA [None]
  - ASTHENIA [None]
  - CARNITINE DEFICIENCY [None]
  - DIFFICULTY IN WALKING [None]
  - FATIGUE [None]
  - MUSCULAR WEAKNESS [None]
  - THERAPY NON-RESPONDER [None]
